FAERS Safety Report 7096008-0 (Version None)
Quarter: 2010Q4

REPORT INFORMATION
  Report Type: 
  Country: None (occurrence: None)
  Receive Date: 20101111
  Receipt Date: 20080822
  Transmission Date: 20110411
  Serious: No
  Sender: FDA-Public Use
  Company Number: US-KINGPHARMUSA00001-K200800996

PATIENT
  Sex: Male

DRUGS (3)
  1. ALTACE [Suspect]
     Indication: HYPERTENSION
     Dosage: 1.25 MG, QD
     Route: 048
     Dates: start: 20060101
  2. PROPRANOLOL [Concomitant]
  3. HYDROCHLOROTHIAZIDE [Concomitant]
     Dosage: UNK, UNK

REACTIONS (1)
  - OEDEMA PERIPHERAL [None]
